FAERS Safety Report 5721966-3 (Version None)
Quarter: 2008Q2

REPORT INFORMATION
  Report Type: 
  Country: None (occurrence: None)
  Receive Date: 20080429
  Receipt Date: 20080403
  Transmission Date: 20081010
  Serious: No
  Sender: FDA-Public Use
  Company Number: US-BOEHRINGER INGELHEIM GMBH, GERMANY-2008-BP-05180BP

PATIENT
  Age: 78 Year
  Sex: Male

DRUGS (3)
  1. FLOMAX [Suspect]
     Indication: BENIGN PROSTATIC HYPERPLASIA
     Dates: start: 20070901
  2. LISINOPRIL [Concomitant]
     Indication: HYPERTENSION
  3. CREON [Concomitant]
     Indication: DYSPEPSIA

REACTIONS (2)
  - ARTHRALGIA [None]
  - BONE PAIN [None]
